FAERS Safety Report 23617264 (Version 2)
Quarter: 2024Q1

REPORT INFORMATION
  Report Type: Report from Study
  Country: US (occurrence: US)
  Receive Date: 20240311
  Receipt Date: 20240326
  Transmission Date: 20240409
  Serious: No
  Sender: FDA-Public Use
  Company Number: US-BIOVITRUM-2024-US-001269

PATIENT
  Age: 81 Year
  Sex: Male

DRUGS (4)
  1. DOPTELET [Suspect]
     Active Substance: AVATROMBOPAG MALEATE
     Indication: Immune thrombocytopenia
     Dosage: 20MG ONCE DAILY
     Route: 048
     Dates: start: 20220517
  2. DOPTELET [Suspect]
     Active Substance: AVATROMBOPAG MALEATE
     Dosage: 20 MG ONCE DAILY
     Route: 048
     Dates: start: 20220512
  3. ORGOVYX [Concomitant]
     Active Substance: RELUGOLIX
     Indication: Product used for unknown indication
     Dosage: 120MG DAILY
  4. TAGRISSO [Concomitant]
     Active Substance: OSIMERTINIB
     Indication: Product used for unknown indication
     Dosage: DISPENSED BY ANOTHER PHARMACY

REACTIONS (5)
  - Positron emission tomogram abnormal [Unknown]
  - Hot flush [Unknown]
  - Night sweats [Unknown]
  - Penile erythema [Unknown]
  - Penile pain [Unknown]
